FAERS Safety Report 6027830-7 (Version None)
Quarter: 2009Q1

REPORT INFORMATION
  Report Type: 
  Country: None (occurrence: None)
  Receive Date: 20090105
  Receipt Date: 20090102
  Transmission Date: 20090719
  Serious: Yes (Life-Threatening, Other)
  Sender: FDA-Public Use
  Company Number: ES-ROXANE LABORATORIES, INC.-2008-RO-00467RO

PATIENT
  Age: 65 Year
  Sex: Female

DRUGS (4)
  1. CITALOPRAM [Suspect]
     Indication: DEPRESSION
     Dosage: 20MG
  2. AMLODIPINE [Suspect]
     Indication: HYPERTENSION
  3. INSULIN [Suspect]
     Indication: INSULIN-REQUIRING TYPE 2 DIABETES MELLITUS
  4. DEFLAZACORT [Suspect]
     Indication: MENISCUS LESION
     Dosage: 6MG

REACTIONS (3)
  - GAIT DISTURBANCE [None]
  - HYPONATRAEMIA [None]
  - INAPPROPRIATE ANTIDIURETIC HORMONE SECRETION [None]
